FAERS Safety Report 4687240-1 (Version None)
Quarter: 2005Q2

REPORT INFORMATION
  Report Type: 
  Country: None (occurrence: None)
  Receive Date: 20050606
  Receipt Date: 20050523
  Transmission Date: 20051028
  Serious: Yes (Disabling)
  Sender: FDA-Public Use
  Company Number: 2003145459IT

PATIENT
  Sex: Male
  Weight: 75 kg

DRUGS (1)
  1. CELECOXIB [Suspect]
     Indication: POLYP
     Dates: start: 20020219, end: 20030203

REACTIONS (2)
  - EYE DISORDER [None]
  - THROMBOSIS [None]
